FAERS Safety Report 14629596 (Version 1)
Quarter: 2018Q1

REPORT INFORMATION
  Report Type: Spontaneous
  Country: US (occurrence: US)
  Receive Date: 20180313
  Receipt Date: 20180313
  Transmission Date: 20180509
  Serious: No
  Sender: FDA-Public Use
  Company Number: US-AUROBINDO-AUR-APL-2017-45326

PATIENT

DRUGS (1)
  1. AMOXICILLIN+CLAVULANIC ACID TABLET [Suspect]
     Active Substance: AMOXICILLIN\CLAVULANIC ACID
     Indication: BRONCHITIS
     Route: 048

REACTIONS (6)
  - Vomiting [Recovered/Resolved]
  - Vertigo [Recovered/Resolved]
  - Rash [Recovered/Resolved]
  - Pruritus [Recovered/Resolved]
  - Throat tightness [Recovered/Resolved]
  - Diarrhoea [Recovered/Resolved]
